FAERS Safety Report 5077821-8 (Version None)
Quarter: 2006Q3

REPORT INFORMATION
  Report Type: 
  Country: None (occurrence: None)
  Receive Date: 20060807
  Receipt Date: 20060720
  Transmission Date: 20061208
  Serious: Yes (Hospitalization)
  Sender: FDA-Public Use
  Company Number: TRP_0828_2006

PATIENT
  Sex: Female

DRUGS (2)
  1. RIBAVIRIN/RIBAVIRIN/THREE RIVERS PHARMA/200 MG [Suspect]
     Dosage: 1200 MQ QDAY PO
     Route: 048
     Dates: start: 20050101, end: 20050702
  2. PEG-INTRON [Suspect]
     Dosage: DF, SC
     Route: 058
     Dates: start: 20050101, end: 20050702

REACTIONS (3)
  - DRUG EXPOSURE DURING PREGNANCY [None]
  - PREMATURE BABY [None]
  - TRANSMISSION OF DRUG VIA SEMEN [None]
